FAERS Safety Report 5444927-0 (Version None)
Quarter: 2007Q3

REPORT INFORMATION
  Report Type: 
  Country: None (occurrence: None)
  Receive Date: 20070906
  Receipt Date: 20070828
  Transmission Date: 20080115
  Serious: Yes (Hospitalization)
  Sender: FDA-Public Use
  Company Number: B0485407A

PATIENT
  Age: 85 Year
  Sex: Female

DRUGS (6)
  1. ZOVIRAX [Suspect]
     Indication: HERPES ZOSTER
     Dosage: 1G PER DAY
     Route: 048
     Dates: start: 20070803, end: 20070805
  2. ZELITREX [Suspect]
     Indication: HERPES ZOSTER
     Dosage: 1G PER DAY
     Route: 048
     Dates: start: 20070805
  3. AUGMENTIN '125' [Suspect]
     Route: 048
     Dates: start: 20070804
  4. OXACILLIN [Suspect]
     Dosage: 1G PER DAY
     Route: 048
     Dates: start: 20070803, end: 20070804
  5. LYRICA [Suspect]
     Dosage: 75MG PER DAY
     Route: 048
     Dates: start: 20070802
  6. TRAMADOL HYDROCHLORIDE AND ACETAMINOPHEN [Suspect]
     Route: 048
     Dates: start: 20070802

REACTIONS (2)
  - PANCYTOPENIA [None]
  - PLATELET COUNT DECREASED [None]
